FAERS Safety Report 10475630 (Version 1)
Quarter: 2014Q3

REPORT INFORMATION
  Report Type: Spontaneous
  Country: CH (occurrence: CH)
  Receive Date: 20140925
  Receipt Date: 20140925
  Transmission Date: 20150326
  Serious: Yes (Hospitalization)
  Sender: FDA-Public Use
  Company Number: CH-BAYER-2014-138414

PATIENT
  Age: 84 Year
  Sex: Female
  Weight: 56 kg

DRUGS (15)
  1. APROVEL [Concomitant]
     Active Substance: IRBESARTAN
     Indication: HYPERTENSION
     Dosage: 150 MG, QD
     Route: 048
  2. BENERVA [Concomitant]
     Active Substance: THIAMINE
     Dosage: 100 MG, QD
  3. BECOZYME [Concomitant]
     Indication: PRODUCT USED FOR UNKNOWN INDICATION
     Dosage: 1 DF, QD
     Route: 048
  4. LACRYVISC [Concomitant]
     Indication: OCULAR DISCOMFORT
     Dosage: 1 GTT, BID
     Route: 031
  5. TROSPIUM CHLORIDE. [Concomitant]
     Active Substance: TROSPIUM CHLORIDE
     Indication: INCONTINENCE
     Dosage: 20 MG, BID
     Route: 048
     Dates: start: 2012
  6. CALCIMAGON-D3 [Concomitant]
     Active Substance: CALCIUM\CHOLECALCIFEROL
     Indication: PRODUCT USED FOR UNKNOWN INDICATION
     Dosage: 1 DF, BID
     Route: 048
  7. IPRATROPIUM BROMIDE W/SALBUTAMOL [Concomitant]
     Indication: BRONCHOPNEUMONIA
     Dosage: 1 DF, UNK
     Route: 055
     Dates: start: 20140704
  8. CLARITHROMYCIN. [Suspect]
     Active Substance: CLARITHROMYCIN
     Indication: BRONCHOPNEUMONIA
     Dosage: 500 MG, BID
     Route: 048
     Dates: start: 20140704, end: 20140707
  9. ARIXTRA [Concomitant]
     Active Substance: FONDAPARINUX SODIUM
     Indication: THROMBOSIS PROPHYLAXIS
     Dosage: 2.5 MG, QD
     Route: 058
     Dates: start: 20140704
  10. BELOC [Concomitant]
     Active Substance: METOPROLOL TARTRATE
     Indication: HYPERTENSION
     Dosage: 100 MG, QD
     Route: 048
  11. GLUCOPHAGE [Suspect]
     Active Substance: METFORMIN HYDROCHLORIDE
     Indication: TYPE 2 DIABETES MELLITUS
     Dosage: 850 MG, BID
     Route: 048
  12. CO-DAFALGAN [Suspect]
     Active Substance: ACETAMINOPHEN\CODEINE PHOSPHATE
     Dosage: 1 DF, TID
     Route: 048
  13. ASPIRIN CARDIO [Suspect]
     Active Substance: ASPIRIN
     Indication: ISCHAEMIC CARDIOMYOPATHY
     Dosage: 100 MG, QD
     Route: 048
  14. CEFTRIAXON [Suspect]
     Active Substance: CEFTRIAXONE
     Indication: BRONCHOPNEUMONIA
     Dosage: 2 G, QD
     Route: 041
     Dates: start: 20140704, end: 20140707
  15. COSOPT [Concomitant]
     Active Substance: DORZOLAMIDE HYDROCHLORIDE\TIMOLOL MALEATE
     Indication: GLAUCOMA
     Dosage: 1 GTT, BID
     Route: 031

REACTIONS (1)
  - Leukopenia [Recovered/Resolved]

NARRATIVE: CASE EVENT DATE: 20140705
